FAERS Safety Report 4750859-3 (Version None)
Quarter: 2005Q3

REPORT INFORMATION
  Report Type: 
  Country: None (occurrence: None)
  Receive Date: 20050822
  Receipt Date: 20050806
  Transmission Date: 20060218
  Serious: Yes (Hospitalization, Other)
  Sender: FDA-Public Use
  Company Number: 2005081532

PATIENT
  Age: 35 Year
  Sex: Female

DRUGS (4)
  1. LIPITOR [Suspect]
     Indication: HYPERCHOLESTEROLAEMIA
     Dosage: 20 MG (20 MG, 1 IN 1 D), ORAL
     Route: 048
  2. OSCAL 500-D (CALCIUM, COLECALCIFEROL) [Concomitant]
  3. PERIOSTAT [Concomitant]
  4. PREVACID [Concomitant]

REACTIONS (5)
  - CHOLELITHIASIS [None]
  - PANCREATITIS ACUTE [None]
  - PSEUDOCYST [None]
  - VOMITING [None]
  - WHITE BLOOD CELL COUNT INCREASED [None]
